FAERS Safety Report 5987126-6 (Version None)
Quarter: 2008Q4

REPORT INFORMATION
  Report Type: 
  Country: None (occurrence: None)
  Receive Date: 20081209
  Receipt Date: 20080410
  Transmission Date: 20090506
  Serious: No
  Sender: FDA-Public Use
  Company Number: US-AMGEN-KDL274215

PATIENT
  Sex: Female

DRUGS (11)
  1. ENBREL [Suspect]
     Indication: RHEUMATOID ARTHRITIS
     Route: 058
     Dates: start: 20080101, end: 20080410
  2. ZOLPIDEM [Concomitant]
  3. NEXIUM [Concomitant]
  4. FLUPHENAZINE [Concomitant]
  5. CELEBREX [Concomitant]
  6. MIRTAZAPINE [Concomitant]
  7. RISEDRONATE SODIUM [Concomitant]
  8. HYDROXYCHLOROQUINE SULFATE [Concomitant]
  9. MORPHINE [Concomitant]
  10. HYDROCODONE BITARTRATE + ACETAMINOPHEN [Concomitant]
  11. DICYCLOMINE HYDROCHLORIDE [Concomitant]

REACTIONS (6)
  - DIARRHOEA [None]
  - INJECTION SITE ERYTHEMA [None]
  - INJECTION SITE REACTION [None]
  - INJECTION SITE URTICARIA [None]
  - URTICARIA [None]
  - VOMITING [None]
